FAERS Safety Report 10514365 (Version 1)
Quarter: 2014Q4

REPORT INFORMATION
  Report Type: Spontaneous
  Country: US (occurrence: US)
  Receive Date: 20141013
  Receipt Date: 20141013
  Transmission Date: 20150528
  Serious: No
  Sender: FDA-Public Use
  Company Number: US-TEVA-515010USA

PATIENT
  Age: 29 Year
  Sex: Female

DRUGS (3)
  1. QVAR [Suspect]
     Active Substance: BECLOMETHASONE DIPROPIONATE
     Indication: UPPER RESPIRATORY TRACT INFLAMMATION
     Route: 055
     Dates: start: 20141008, end: 20141008
  2. PROAIR HFA [Concomitant]
     Active Substance: ALBUTEROL SULFATE
  3. QVAR [Suspect]
     Active Substance: BECLOMETHASONE DIPROPIONATE
     Indication: BRONCHITIS

REACTIONS (2)
  - Dyspnoea [Recovered/Resolved]
  - Chest pain [Recovered/Resolved]

NARRATIVE: CASE EVENT DATE: 20141008
